FAERS Safety Report 14027900 (Version 4)
Quarter: 2017Q4

REPORT INFORMATION
  Report Type: Spontaneous
  Country: JP (occurrence: JP)
  Receive Date: 20170929
  Receipt Date: 20171117
  Transmission Date: 20180321
  Serious: Yes (Other)
  Sender: FDA-Public Use
  Company Number: JP-009507513-1709JPN006299

PATIENT
  Age: 77 Year
  Sex: Female

DRUGS (7)
  1. PARIET [Concomitant]
     Active Substance: RABEPRAZOLE SODIUM
     Indication: GASTROOESOPHAGEAL REFLUX DISEASE
     Dosage: 10 MILLIGRAM/DAY
     Route: 048
     Dates: start: 20170630
  2. NORVASC [Concomitant]
     Active Substance: AMLODIPINE BESYLATE
     Indication: HYPERTENSION
     Dosage: 10 MG, QD
     Route: 048
     Dates: start: 20170630
  3. LIPITOR [Concomitant]
     Active Substance: ATORVASTATIN CALCIUM
     Indication: HYPERCHOLESTEROLAEMIA
     Dosage: 10 MG, QD
     Route: 048
     Dates: start: 20170630
  4. BELSOMRA [Concomitant]
     Active Substance: SUVOREXANT
     Dosage: 15 MILLIGRAM/DAY
     Route: 048
     Dates: start: 20170829
  5. ALENDRONATE SODIUM. [Suspect]
     Active Substance: ALENDRONATE SODIUM
     Indication: OSTEOPOROSIS
     Dosage: 35 MG, PER WEEK
     Route: 048
     Dates: start: 20170828, end: 20170828
  6. MYSLEE [Concomitant]
     Active Substance: ZOLPIDEM TARTRATE
     Indication: INSOMNIA
     Dosage: 5 MILLIGRAM/DAY
     Route: 048
     Dates: start: 20170818, end: 20170918
  7. EDIROL [Concomitant]
     Active Substance: ELDECALCITOL
     Indication: OSTEOPOROSIS
     Dosage: 0.75 MICROGRAM/DAY
     Route: 048
     Dates: start: 20170818

REACTIONS (7)
  - Dizziness [Recovered/Resolved]
  - Oropharyngeal pain [Recovered/Resolved]
  - Nausea [Recovered/Resolved]
  - Ear pain [Recovered/Resolved]
  - Hyperhidrosis [Recovered/Resolved]
  - Malaise [Recovered/Resolved]
  - Headache [Recovered/Resolved]

NARRATIVE: CASE EVENT DATE: 20170830
